FAERS Safety Report 9959328 (Version 1)
Quarter: 2014Q1

REPORT INFORMATION
  Report Type: Report from Study
  Country: US (occurrence: US)
  Receive Date: 20140305
  Receipt Date: 20140305
  Transmission Date: 20141002
  Serious: No
  Sender: FDA-Public Use
  Company Number: US-ABBVIE-13P-163-1104460-00

PATIENT
  Age: 42 Year
  Sex: Male
  Weight: 118.04 kg

DRUGS (4)
  1. HUMIRA [Suspect]
     Indication: PSORIASIS
     Route: 058
     Dates: start: 2010, end: 2010
  2. HUMIRA [Suspect]
     Route: 058
     Dates: start: 2010, end: 2012
  3. HUMIRA [Suspect]
     Route: 058
     Dates: start: 201304, end: 201304
  4. HUMIRA [Suspect]
     Route: 058
     Dates: start: 201305

REACTIONS (2)
  - Drug effect decreased [Not Recovered/Not Resolved]
  - Psoriasis [Recovering/Resolving]
